FAERS Safety Report 6649006-2 (Version None)
Quarter: 2010Q1

REPORT INFORMATION
  Report Type: 
  Country: None (occurrence: None)
  Receive Date: 20100319
  Receipt Date: 20100309
  Transmission Date: 20100710
  Serious: Yes (Death)
  Sender: FDA-Public Use
  Company Number: 009170

PATIENT
  Age: 57 Year
  Sex: Male

DRUGS (2)
  1. BUSULFEX [Suspect]
     Indication: STEM CELL TRANSPLANT
     Dosage: 3.2 MG/KG, QD INTRAVENOUS
     Route: 042
     Dates: start: 20080305, end: 20080306
  2. FLUDARABINE PHOSPHATE [Concomitant]

REACTIONS (4)
  - INTESTINAL OBSTRUCTION [None]
  - PNEUMONIA [None]
  - SEPSIS [None]
  - STEM CELL TRANSPLANT [None]
